FAERS Safety Report 13027472 (Version 1)
Quarter: 2016Q4

REPORT INFORMATION
  Report Type: Spontaneous
  Country: MX (occurrence: MX)
  Receive Date: 20161214
  Receipt Date: 20161214
  Transmission Date: 20170207
  Serious: Yes (Death, Hospitalization)
  Sender: FDA-Public Use
  Company Number: MX-SA-2016SA224657

PATIENT
  Age: 93 Year
  Sex: Female

DRUGS (4)
  1. LANTUS SOLOSTAR [Suspect]
     Active Substance: INSULIN GLARGINE
     Indication: DIABETES MELLITUS
     Dosage: DOSE: 3-4 IU
     Route: 058
     Dates: start: 2009, end: 2013
  2. SOLOSTAR [Concomitant]
     Active Substance: DEVICE
     Dates: start: 2009, end: 2013
  3. SHORANT SOLOSTAR [Suspect]
     Active Substance: INSULIN GLULISINE
     Indication: DIABETES MELLITUS
     Route: 058
     Dates: start: 2009, end: 2013
  4. SOLOSTAR [Concomitant]
     Active Substance: DEVICE
     Dates: start: 2009, end: 2013

REACTIONS (2)
  - Pneumonia [Fatal]
  - Chronic kidney disease [Fatal]

NARRATIVE: CASE EVENT DATE: 2013
